FAERS Safety Report 5289680-9 (Version None)
Quarter: 2007Q2

REPORT INFORMATION
  Report Type: 
  Country: None (occurrence: None)
  Receive Date: 20070406
  Receipt Date: 20070328
  Transmission Date: 20071010
  Serious: Yes (Disabling)
  Sender: FDA-Public Use
  Company Number: BR-AVENTIS-200711387EU

PATIENT
  Age: 64 Year
  Sex: Male
  Weight: 75 kg

DRUGS (5)
  1. TRENTAL [Suspect]
     Route: 048
     Dates: start: 20070308, end: 20070326
  2. TICLID [Concomitant]
     Route: 048
     Dates: start: 20070308
  3. LEXOTAN [Concomitant]
     Indication: ANXIETY
     Dosage: DOSE: UNK
     Route: 048
     Dates: start: 20040101
  4. ARADOIS [Concomitant]
     Indication: HYPERTENSION
     Route: 048
  5. EUTHYROX [Concomitant]
     Route: 048
     Dates: start: 20050101

REACTIONS (7)
  - CONDITION AGGRAVATED [None]
  - DIZZINESS [None]
  - MALAISE [None]
  - MUSCULAR WEAKNESS [None]
  - PALPITATIONS [None]
  - SOMNOLENCE [None]
  - TREMOR [None]
